FAERS Safety Report 12889748 (Version 2)
Quarter: 2016Q4

REPORT INFORMATION
  Report Type: Report from Study
  Country: US (occurrence: US)
  Receive Date: 20161027
  Receipt Date: 20161104
  Transmission Date: 20170207
  Serious: Yes (Death, Hospitalization, Other)
  Sender: FDA-Public Use
  Company Number: US-JNJFOC-20160825408

PATIENT
  Age: 82 Year
  Sex: Female
  Weight: 64 kg

DRUGS (12)
  1. AMIODARONE [Concomitant]
     Active Substance: AMIODARONE
     Indication: ATRIAL FIBRILLATION
     Route: 065
     Dates: start: 20160509
  2. REGLAN [Concomitant]
     Active Substance: METOCLOPRAMIDE HYDROCHLORIDE
  3. IRON [Concomitant]
     Active Substance: IRON
  4. CARDIZEM [Concomitant]
     Active Substance: DILTIAZEM HYDROCHLORIDE
  5. LACTOBACILLUS [Concomitant]
     Active Substance: LACTOBACILLUS ACIDOPHILUS
  6. MELATONIN [Concomitant]
     Active Substance: MELATONIN
  7. IMBRUVICA [Suspect]
     Active Substance: IBRUTINIB
     Indication: MANTLE CELL LYMPHOMA
     Route: 048
     Dates: start: 20151023, end: 20160722
  8. ELIQUIS [Suspect]
     Active Substance: APIXABAN
     Indication: ATRIAL FIBRILLATION
     Route: 065
     Dates: start: 20160509
  9. METRONIDAZOLE. [Concomitant]
     Active Substance: METRONIDAZOLE
  10. CARAFATE [Concomitant]
     Active Substance: SUCRALFATE
  11. MEGACE [Concomitant]
     Active Substance: MEGESTROL ACETATE
  12. PROTONIX [Concomitant]
     Active Substance: PANTOPRAZOLE SODIUM

REACTIONS (21)
  - Hypokalaemia [Unknown]
  - Pyelonephritis [Fatal]
  - Right atrial enlargement [Unknown]
  - Perianal erythema [Unknown]
  - Pneumonia [Fatal]
  - Cholecystitis [Unknown]
  - Neutropenia [Unknown]
  - Thrombocytopenia [Unknown]
  - Pulmonary hypertension [Unknown]
  - Pancytopenia [Unknown]
  - Disease progression [Unknown]
  - Oesophagitis [Unknown]
  - Clostridium difficile colitis [Fatal]
  - Atrial fibrillation [Unknown]
  - Septic shock [Fatal]
  - Decreased appetite [Unknown]
  - Acute kidney injury [Fatal]
  - Lactic acidosis [Unknown]
  - Systemic candida [Fatal]
  - Hypomagnesaemia [Unknown]
  - Bacterascites [Fatal]

NARRATIVE: CASE EVENT DATE: 201604
